FAERS Safety Report 18888539 (Version 1)
Quarter: 2021Q1

REPORT INFORMATION
  Report Type: Spontaneous
  Country: GB (occurrence: GB)
  Receive Date: 20210212
  Receipt Date: 20210212
  Transmission Date: 20210420
  Serious: Yes (Death, Other)
  Sender: FDA-Public Use
  Company Number: GB-TEVA-2021-GB-1876590

PATIENT
  Age: 62 Year
  Sex: Female

DRUGS (56)
  1. DALTEPARIN [Concomitant]
     Active Substance: DALTEPARIN
     Dosage: 15000 UNIT
     Route: 058
     Dates: start: 20190628, end: 20190628
  2. IRON SUCROSE [Concomitant]
     Active Substance: IRON SUCROSE
     Indication: ANAEMIA
     Dosage: 200 MILLIGRAM DAILY; 200 MILLIGRAM, QD
     Route: 042
     Dates: start: 20200313, end: 20200326
  3. MACROGOL [Concomitant]
     Active Substance: POLYETHYLENE GLYCOLS
     Dosage: UNK
     Route: 048
     Dates: start: 20190630, end: 20190630
  4. METOCLOPRAMIDE. [Concomitant]
     Active Substance: METOCLOPRAMIDE
     Dosage: 10 MILLIGRAM
     Route: 048
     Dates: start: 20190716
  5. MORPHINE SULPHATE [Concomitant]
     Active Substance: MORPHINE SULFATE
     Dosage: 30 MILLIGRAM
     Route: 048
     Dates: start: 20190930, end: 20191002
  6. MORPHINE SULPHATE [Concomitant]
     Active Substance: MORPHINE SULFATE
     Dosage: 20 MILLIGRAM
     Route: 048
     Dates: start: 20191002, end: 20191003
  7. ORAMORPH [Concomitant]
     Active Substance: MORPHINE SULFATE
     Dosage: 10 MILLIGRAM
     Route: 048
     Dates: start: 20190929, end: 20191003
  8. PERTUZUMAB. [Suspect]
     Active Substance: PERTUZUMAB
     Dosage: 420 MILLIGRAM, Q3WK
     Route: 042
     Dates: start: 20171211, end: 20190329
  9. TRASTUZUMAB EMTANSINE [Suspect]
     Active Substance: ADO-TRASTUZUMAB EMTANSINE
     Indication: BREAST CANCER
     Dosage: 200 MILLIGRAM, Q3WK
     Route: 042
     Dates: start: 20190904
  10. TRASTUZUMAB EMTANSINE [Suspect]
     Active Substance: ADO-TRASTUZUMAB EMTANSINE
     Dosage: 260 MILLIGRAM
     Route: 042
     Dates: start: 20190814, end: 20190903
  11. ADCAL?D3 [Concomitant]
     Active Substance: CALCIUM CARBONATE\CHOLECALCIFEROL
     Indication: PROPHYLAXIS
     Dosage: 1 DOSAGE FORMS DAILY; 1 DOSAGE FORM, QD
     Route: 048
     Dates: start: 20171120
  12. DALTEPARIN [Concomitant]
     Active Substance: DALTEPARIN
     Dosage: 5000 INTERNATIONAL UNIT
     Route: 058
     Dates: start: 20180626, end: 20180628
  13. FENTANYL. [Concomitant]
     Active Substance: FENTANYL
     Dosage: 50 MILLIGRAM
     Route: 062
     Dates: start: 201911, end: 20200504
  14. GENTAMICIN. [Concomitant]
     Active Substance: GENTAMICIN
     Dosage: 120 MILLIGRAM
     Route: 042
     Dates: start: 20200310, end: 20200310
  15. MORPHINE SULPHATE [Concomitant]
     Active Substance: MORPHINE SULFATE
     Dosage: 10 MILLIGRAM, QD
     Route: 048
     Dates: start: 20191003, end: 20191003
  16. SENNA ALEXANDRINA [Concomitant]
     Active Substance: SENNA LEAF
     Indication: CONSTIPATION
     Dosage: 15 MILLIGRAM
     Route: 048
     Dates: start: 20191001, end: 201910
  17. DEXAMETHASONE. [Concomitant]
     Active Substance: DEXAMETHASONE
     Indication: HEMIPARESIS
     Dosage: 4 MILLIGRAM
     Route: 048
     Dates: start: 20190329
  18. LORAZEPAM. [Concomitant]
     Active Substance: LORAZEPAM
     Indication: ANXIETY
     Dosage: 1 MILLIGRAM DAILY; 1 MILLIGRAM, QD
     Route: 048
     Dates: start: 20190629, end: 20190629
  19. OXYGEN. [Concomitant]
     Active Substance: OXYGEN
     Dosage: UNK
     Route: 055
     Dates: start: 20190628, end: 20190701
  20. SENNA ALEXANDRINA [Concomitant]
     Active Substance: SENNA LEAF
     Dosage: 1 MILLIGRAM
     Route: 048
     Dates: start: 20190629, end: 20190629
  21. DENOSUMAB [Concomitant]
     Active Substance: DENOSUMAB
     Indication: PROPHYLAXIS
     Dosage: 120 MILLIGRAM, Q4WK
     Route: 058
     Dates: start: 20171020
  22. DEXAMETHASONE. [Concomitant]
     Active Substance: DEXAMETHASONE
     Indication: PAIN
     Dosage: 8 MILLIGRAM, Q3WK
     Route: 042
     Dates: start: 20190716, end: 20200310
  23. TRASTUZUMAB EMTANSINE [Suspect]
     Active Substance: ADO-TRASTUZUMAB EMTANSINE
     Dosage: 300 MILLIGRAM, Q3WK
     Route: 042
     Dates: start: 20190716, end: 20190813
  24. DALTEPARIN [Concomitant]
     Active Substance: DALTEPARIN
     Dosage: 5000 INTERNATIONAL UNIT
     Route: 058
     Dates: start: 20180623, end: 20180624
  25. DALTEPARIN [Concomitant]
     Active Substance: DALTEPARIN
     Dosage: 18000 INTERNATIONAL UNIT
     Route: 058
     Dates: start: 20190701
  26. GLYCERINE [Concomitant]
     Active Substance: GLYCERIN
     Indication: CONSTIPATION
     Dosage: 4 GRAM, RECTUM
     Dates: start: 20200315, end: 20200315
  27. DEXAMETHASONE. [Concomitant]
     Active Substance: DEXAMETHASONE
     Indication: URINARY INCONTINENCE
     Dosage: 4 MILLIGRAM
     Route: 048
     Dates: start: 20190412
  28. TRASTUZUMAB. [Suspect]
     Active Substance: TRASTUZUMAB
     Indication: BREAST CANCER
     Dosage: 693 MILLIGRAM (LOADING DOSE)
     Route: 042
     Dates: start: 20171120, end: 20171120
  29. BISACODYL. [Concomitant]
     Active Substance: BISACODYL
     Indication: CONSTIPATION
     Dosage: 10 MILLIGRAM
     Route: 054
     Dates: start: 20200315, end: 20200315
  30. DALTEPARIN [Concomitant]
     Active Substance: DALTEPARIN
     Dosage: 5000 INTERNATIONAL UNIT, 15000 U
     Route: 058
     Dates: start: 20190628, end: 20190628
  31. OMEPRAZOLE. [Concomitant]
     Active Substance: OMEPRAZOLE
     Dosage: 20 MILLIGRAM, QD
     Route: 048
     Dates: start: 20190329
  32. PARACETAMOL [Concomitant]
     Active Substance: ACETAMINOPHEN
     Dosage: 1 GRAM
     Route: 048
     Dates: start: 20190930
  33. DEXAMETHASONE. [Concomitant]
     Active Substance: DEXAMETHASONE
     Dosage: 2 MILLIGRAM
     Route: 048
     Dates: start: 20190805
  34. IBUPROFEN. [Concomitant]
     Active Substance: IBUPROFEN
     Dosage: 400 MILLIGRAM
     Route: 048
     Dates: start: 20190930
  35. OXYCODONE [Concomitant]
     Active Substance: OXYCODONE
     Dosage: 10 MILLIGRAM
     Route: 048
     Dates: start: 20191003
  36. DOCETAXEL. [Suspect]
     Active Substance: DOCETAXEL
     Indication: BREAST CANCER
     Dosage: 200 MILLIGRAM
     Route: 042
     Dates: start: 20171120, end: 20180101
  37. PERTUZUMAB. [Suspect]
     Active Substance: PERTUZUMAB
     Indication: BREAST CANCER
     Dosage: 840 MILLIGRAM (LOADING DOSE)
     Route: 042
     Dates: start: 20171120, end: 20171120
  38. DALTEPARIN [Concomitant]
     Active Substance: DALTEPARIN
     Indication: PROPHYLAXIS
     Dosage: 5000 INTERNATIONAL UNIT
     Route: 058
     Dates: start: 20200303, end: 20200331
  39. DOCUSATE SODIUM. [Concomitant]
     Active Substance: DOCUSATE SODIUM
     Indication: CONSTIPATION
     Dosage: 100 MILLIGRAM
     Route: 048
     Dates: start: 20191003
  40. GRANISETRON [Concomitant]
     Active Substance: GRANISETRON
     Dosage: 1 MILLIGRAM, Q3WK
     Route: 042
     Dates: start: 20190716
  41. ORAMORPH [Concomitant]
     Active Substance: MORPHINE SULFATE
     Dosage: 5 MILLIGRAM
     Route: 048
     Dates: start: 201912, end: 20200401
  42. OXYCODONE [Concomitant]
     Active Substance: OXYCODONE
     Dosage: 2.5 MILLIGRAM
     Route: 048
     Dates: start: 20191003
  43. XGEVA [Suspect]
     Active Substance: DENOSUMAB
     Indication: PROPHYLAXIS
     Dosage: 120 MILLIGRAM, Q4WK
     Route: 058
     Dates: start: 20171020
  44. DIHYDROCODEINE [Concomitant]
     Active Substance: DIHYDROCODEINE
     Indication: PAIN IN EXTREMITY
     Dosage: 30 MILLIGRAM
     Route: 048
     Dates: start: 20200303, end: 20200331
  45. PREGABALIN. [Concomitant]
     Active Substance: PREGABALIN
     Dosage: 75 MILLIGRAM
     Route: 048
     Dates: start: 20190930
  46. DEXAMETHASONE. [Concomitant]
     Active Substance: DEXAMETHASONE
     Indication: AMNESIA
     Dosage: 2 MILLIGRAM
     Route: 042
     Dates: start: 20190716
  47. DOCETAXEL. [Suspect]
     Active Substance: DOCETAXEL
     Dosage: 180 MILLIGRAM, Q3WK
     Route: 042
     Dates: start: 20180122
  48. TRASTUZUMAB. [Suspect]
     Active Substance: TRASTUZUMAB
     Dosage: 515 MILLIGRAM, Q4WK
     Route: 042
     Dates: start: 20171211, end: 20190329
  49. DALTEPARIN [Concomitant]
     Active Substance: DALTEPARIN
     Dosage: 15000 INTERNATIONAL UNIT
     Route: 058
     Dates: start: 20190802
  50. LEVOBUPIVACAINE [Concomitant]
     Active Substance: LEVOBUPIVACAINE
     Indication: PAIN IN EXTREMITY
     Dosage: 5 MILLILITER, QH
     Route: 058
     Dates: start: 20200304, end: 20200331
  51. LEVOFLOXACIN. [Concomitant]
     Active Substance: LEVOFLOXACIN
     Dosage: 500 MILLIGRAM
     Route: 048
     Dates: start: 20191008, end: 20191014
  52. MACROGOL [Concomitant]
     Active Substance: POLYETHYLENE GLYCOLS
     Indication: CONSTIPATION
     Dosage: 1 SACHET
     Route: 048
     Dates: start: 20191003, end: 201910
  53. PARACETAMOL [Concomitant]
     Active Substance: ACETAMINOPHEN
     Indication: PAIN IN EXTREMITY
     Dosage: 1 GRAM
     Route: 048
     Dates: start: 20180624, end: 20180704
  54. SODIUM CITRATE. [Concomitant]
     Active Substance: SODIUM CITRATE
     Indication: CONSTIPATION
     Dosage: 450 MILLIGRAM, RECTUM
     Dates: start: 20200315, end: 20200315
  55. TAZOCIN [Concomitant]
     Active Substance: PIPERACILLIN SODIUM\TAZOBACTAM SODIUM
     Dosage: 4.5 MILLIGRAM
     Route: 042
     Dates: start: 20191005, end: 20191007
  56. TRANEXAMIC ACID. [Concomitant]
     Active Substance: TRANEXAMIC ACID
     Dosage: 1 GRAM
     Route: 042
     Dates: start: 20200310, end: 20200310

REACTIONS (3)
  - Pneumonia [Fatal]
  - Off label use [Unknown]
  - Fatigue [Not Recovered/Not Resolved]

NARRATIVE: CASE EVENT DATE: 20171120
